FAERS Safety Report 12459806 (Version 1)
Quarter: 2016Q2

REPORT INFORMATION
  Report Type: Spontaneous
  Country: PL (occurrence: PL)
  Receive Date: 20160613
  Receipt Date: 20160613
  Transmission Date: 20160815
  Serious: Yes (Life-Threatening)
  Sender: FDA-Public Use
  Company Number: PHHY2015PL175840

PATIENT
  Sex: Female
  Weight: 89 kg

DRUGS (1)
  1. AMOKSIKLAV [Suspect]
     Active Substance: AMOXICILLIN\CLAVULANATE POTASSIUM
     Indication: PNEUMONIA
     Dosage: 1 DF, TID
     Route: 042
     Dates: start: 20150628, end: 20150630

REACTIONS (3)
  - Syncope [Recovered/Resolved]
  - Dyspnoea [Recovered/Resolved]
  - Speech disorder developmental [Recovered/Resolved]

NARRATIVE: CASE EVENT DATE: 20150630
